FAERS Safety Report 11410625 (Version 1)
Quarter: 2015Q3

REPORT INFORMATION
  Report Type: Spontaneous
  Country: JP (occurrence: JP)
  Receive Date: 20150824
  Receipt Date: 20150824
  Transmission Date: 20151125
  Serious: Yes (Other)
  Sender: FDA-Public Use
  Company Number: JP-PFIZER INC-2015263198

PATIENT
  Age: 83 Year
  Sex: Female

DRUGS (19)
  1. OLMETEC [Concomitant]
     Active Substance: OLMESARTAN MEDOXOMIL
     Dosage: 20 MG, 1X/DAY
     Route: 048
  2. ADETPHOS [Concomitant]
     Active Substance: ADENOSINE TRIPHOSPHATE
     Dosage: 1 DF, 3X/DAY
     Route: 048
  3. OPALMON [Concomitant]
     Active Substance: LIMAPROST
     Dosage: 5 ?G, 3X/DAY
     Route: 048
  4. PURSENID [Concomitant]
     Dosage: 12 MG, ONCE DAILY AS NEEDED
     Route: 048
  5. CRESTOR [Concomitant]
     Active Substance: ROSUVASTATIN CALCIUM
     Dosage: 1.25 MG, 1X/DAY
     Route: 048
  6. PLETAAL OD [Concomitant]
     Active Substance: CILOSTAZOL
     Dosage: 100 MG, 2X/DAY
     Route: 048
  7. ALESION [Concomitant]
     Active Substance: EPINASTINE HYDROCHLORIDE
     Dosage: 20 MG, 1X/DAY
     Route: 048
  8. PARIET [Concomitant]
     Active Substance: RABEPRAZOLE SODIUM
     Dosage: 10 MG, 1X/DAY
     Route: 048
  9. OPALMON [Concomitant]
     Active Substance: LIMAPROST
     Dosage: 3 DF, 3X/DAY
     Route: 048
  10. METHYCOBAL [Concomitant]
     Active Substance: METHYLCOBALAMIN
     Dosage: 3 DF, 3X/DAY
     Route: 048
  11. SOLETON [Concomitant]
     Active Substance: ZALTOPROFEN
     Dosage: 3 DF, 3X/DAY
     Route: 048
  12. ADETPHOS [Concomitant]
     Active Substance: ADENOSINE TRIPHOSPHATE
     Dosage: 3 G, 3X/DAY
     Route: 048
  13. KAKKON-TO [Concomitant]
     Active Substance: HERBS\ROOTS
     Dosage: 7.5 G, 3X/DAY
     Route: 048
  14. LYRICA [Suspect]
     Active Substance: PREGABALIN
     Indication: SYNOVIAL CYST
     Dosage: 50 MG, 2X/DAY
     Route: 048
     Dates: start: 20150306, end: 20150529
  15. MUCODYNE [Concomitant]
     Active Substance: CARBOCYSTEINE
     Dosage: 2 DF, 2X/DAY
     Route: 048
  16. LASIX [Concomitant]
     Active Substance: FUROSEMIDE
     Dosage: 20 MG, 1X/DAY
     Route: 048
  17. CALBLOCK [Concomitant]
     Active Substance: AZELNIDIPINE
     Dosage: 8 MG, 1X/DAY
     Route: 048
  18. METHYCOBAL [Concomitant]
     Active Substance: METHYLCOBALAMIN
     Dosage: 500 MG, 3X/DAY
     Route: 048
  19. RELVAR ELLIPTA [Concomitant]
     Active Substance: FLUTICASONE FUROATE\VILANTEROL TRIFENATATE
     Route: 055

REACTIONS (6)
  - Visual acuity reduced [Not Recovered/Not Resolved]
  - Amblyopia [Unknown]
  - Somnolence [Unknown]
  - Generalised oedema [Unknown]
  - Product use issue [Unknown]
  - Condition aggravated [Unknown]

NARRATIVE: CASE EVENT DATE: 20150306
